FAERS Safety Report 6388462-4 (Version None)
Quarter: 2009Q4

REPORT INFORMATION
  Report Type: 
  Country: None (occurrence: None)
  Receive Date: 20091001
  Receipt Date: 20091001
  Transmission Date: 20100525
  Serious: Yes (Disabling)
  Sender: FDA-Public Use
  Company Number: None

PATIENT
  Sex: Male
  Weight: 88 kg

DRUGS (5)
  1. ROPIVACAINE HYDROCHLORIDE [Suspect]
     Indication: NERVE BLOCK
  2. CARBOCAINE [Suspect]
  3. DEXAMETHASONE [Suspect]
  4. FENTANYL CITRATE [Suspect]
  5. MIDAZOLAM HCL [Suspect]

REACTIONS (1)
  - GRAND MAL CONVULSION [None]
